FAERS Safety Report 9293202 (Version 1)
Quarter: 2013Q2

REPORT INFORMATION
  Report Type: Spontaneous
  Country: US (occurrence: US)
  Receive Date: 20130516
  Receipt Date: 20130516
  Transmission Date: 20140414
  Serious: No
  Sender: FDA-Public Use
  Company Number: US-PFIZER INC-2013149132

PATIENT
  Age: 38 Year
  Sex: Female
  Weight: 68.03 kg

DRUGS (5)
  1. LEVOTHYROXINE SODIUM [Suspect]
     Dosage: UNK
  2. LEVO-T [Suspect]
     Dosage: UNK
  3. SYNTHROID [Suspect]
     Dosage: UNK
  4. ARMOUR THYROID [Suspect]
     Dosage: UNK
  5. CLARITIN [Concomitant]
     Indication: HYPERSENSITIVITY
     Dosage: 10 MG, UNK

REACTIONS (1)
  - Rash [Unknown]
